FAERS Safety Report 8682379 (Version 2)
Quarter: 2012Q4

REPORT INFORMATION
  Report Type: 
  Country: US (occurrence: US)
  Receive Date: 20120725
  Receipt Date: 20120911
  Transmission Date: 20130627
  Serious: Yes (Hospitalization)
  Sender: FDA-Public Use
  Company Number: US-ASTRAZENECA-2012SE49667

PATIENT
  Age: 80 Year
  Sex: Female

DRUGS (2)
  1. NEXIUM [Suspect]
     Route: 048
  2. UNSPECIFIED ANTIBIOTIC [Suspect]
     Indication: INFECTION
     Route: 065

REACTIONS (2)
  - Abdominal discomfort [Unknown]
  - Infection [Unknown]
